FAERS Safety Report 26196206 (Version 1)
Quarter: 2025Q4

REPORT INFORMATION
  Report Type: Spontaneous
  Country: US (occurrence: US)
  Receive Date: 20251224
  Receipt Date: 20251224
  Transmission Date: 20260118
  Serious: Yes (Hospitalization)
  Sender: Unknown Manufacturer
  Company Number: US-GENETIX BIOTHERAPEUTICS INC.-US-BBB-25-00100

PATIENT
  Age: 15 Year

DRUGS (1)
  1. LYFGENIA [Suspect]
     Active Substance: LOVOTIBEGLOGENE AUTOTEMCEL
     Indication: Sickle cell disease
     Dosage: UNK, UNK
     Route: 065

REACTIONS (3)
  - Dysphagia [Unknown]
  - Oral pain [Unknown]
  - Ageusia [Unknown]
